FAERS Safety Report 9802030 (Version 1)
Quarter: 2014Q1

REPORT INFORMATION
  Report Type: Spontaneous
  Country: FR (occurrence: FR)
  Receive Date: 20140107
  Receipt Date: 20140107
  Transmission Date: 20141002
  Serious: Yes (Hospitalization, Other)
  Sender: FDA-Public Use
  Company Number: FR-ABBVIE-14P-056-1186538-00

PATIENT
  Age: 23 Year
  Sex: Male

DRUGS (5)
  1. DEPAKOTE [Suspect]
     Indication: THYMUS DISORDER
     Route: 048
     Dates: start: 20130503, end: 20130930
  2. OLANZAPINE [Suspect]
     Indication: PSYCHOTIC DISORDER
     Route: 048
     Dates: start: 20130505, end: 20131030
  3. DIAZEPAM [Concomitant]
     Indication: PRODUCT USED FOR UNKNOWN INDICATION
     Dates: start: 20130529, end: 20130718
  4. ABILIFY [Concomitant]
     Indication: PRODUCT USED FOR UNKNOWN INDICATION
     Dates: start: 20130329, end: 201304
  5. RISPERIDONE [Concomitant]
     Indication: PRODUCT USED FOR UNKNOWN INDICATION
     Dates: start: 201304, end: 201305

REACTIONS (3)
  - Erectile dysfunction [Recovered/Resolved]
  - Libido disorder [Recovered/Resolved]
  - Hyperprolactinaemia [Recovered/Resolved]
